FAERS Safety Report 21754836 (Version 1)
Quarter: 2022Q4

REPORT INFORMATION
  Report Type: Report from Study
  Country: US (occurrence: US)
  Receive Date: 20221220
  Receipt Date: 20221220
  Transmission Date: 20230113
  Serious: Yes (Hospitalization)
  Sender: FDA-Public Use
  Company Number: US-PFIZER INC-PV202200120928

PATIENT
  Age: 73 Year
  Sex: Female
  Weight: 57.324 kg

DRUGS (1)
  1. TORISEL [Suspect]
     Active Substance: TEMSIROLIMUS
     Dosage: 25.0 MG/DOSE
     Route: 042

REACTIONS (1)
  - Arthritis bacterial [Recovered/Resolved with Sequelae]
